FAERS Safety Report 5115425-9 (Version None)
Quarter: 2006Q3

REPORT INFORMATION
  Report Type: 
  Country: None (occurrence: None)
  Receive Date: 20060922
  Receipt Date: 20060505
  Transmission Date: 20061208
  Serious: Yes (Other)
  Sender: FDA-Public Use
  Company Number: 2006BH009492

PATIENT

DRUGS (5)
  1. DEXAMETHASONE TAB [Suspect]
     Indication: MULTIPLE MYELOMA
     Dosage: 40 MG; EVERY DAY; IV
     Route: 042
  2. CYCLOPHOSPHAMIDE [Suspect]
     Indication: MULTIPLE MYELOMA
     Dosage: 400 MG/M**2; EVERY DAY; IV
     Route: 042
  3. ETOPOSIDE [Suspect]
     Indication: MULTIPLE MYELOMA
     Dosage: 40 MG'M**2; EVERY DAY;  IV
     Route: 042
  4. CISPLATIN [Suspect]
     Indication: MULTIPLE MYELOMA
     Dosage: 10 MG/M**2; EVERY DAY; IV
     Route: 042
  5. NEUPOGEN [Concomitant]

REACTIONS (1)
  - NEUTROPENIA [None]
